FAERS Safety Report 8739428 (Version 2)
Quarter: 2012Q4

REPORT INFORMATION
  Report Type: 
  Country: GB (occurrence: GB)
  Receive Date: 20120823
  Receipt Date: 20120907
  Transmission Date: 20130627
  Serious: Yes (Other)
  Sender: FDA-Public Use
  Company Number: GB-WATSON-2012-14600

PATIENT
  Age: 68 Year
  Sex: Female
  Weight: 55 kg

DRUGS (5)
  1. MIRTAZAPINE (UNKNOWN) [Suspect]
     Indication: ANXIETY
     Dosage: 30 mg, unknown
     Route: 048
     Dates: end: 20120703
  2. MIRTAZAPINE (UNKNOWN) [Suspect]
     Indication: DEPRESSION
  3. DOUBLEBASE [Concomitant]
     Indication: PRODUCT USED FOR UNKNOWN INDICATION
     Dosage: 1 DF, q6h
     Route: 065
  4. PARAFFIN, LIQUID [Concomitant]
     Indication: PRODUCT USED FOR UNKNOWN INDICATION
     Dosage: 20 ml in bath or onto wet skin.
     Route: 065
  5. QUININE SULPHATE [Concomitant]
     Indication: MUSCLE SPASMS
     Dosage: 300 mg, at night
     Route: 048

REACTIONS (2)
  - Chromaturia [Recovered/Resolved]
  - Faeces discoloured [Recovered/Resolved]
